FAERS Safety Report 9224529 (Version 1)
Quarter: 2013Q1

REPORT INFORMATION
  Report Type: Spontaneous
  Country: US (occurrence: None)
  Receive Date: 20120920
  Receipt Date: 20120920
  Transmission Date: 20140127
  Serious: Yes (Hospitalization, Other)
  Sender: FDA-Public Use
  Company Number: USW201207-000106

PATIENT
  Sex: Male

DRUGS (1)
  1. DANTROLENE [Suspect]
     Indication: HYPERTHERMIA MALIGNANT
     Dosage: INFUSION

REACTIONS (2)
  - Hyperthermia malignant [None]
  - Blood creatine phosphokinase increased [None]
